FAERS Safety Report 8742073 (Version 9)
Quarter: 2014Q1

REPORT INFORMATION
  Report Type: Spontaneous
  Country: US (occurrence: US)
  Receive Date: 20120824
  Receipt Date: 20140210
  Transmission Date: 20141002
  Serious: Yes (Life-Threatening, Other)
  Sender: FDA-Public Use
  Company Number: US-PFIZER INC-2012205001

PATIENT
  Age: 51 Year
  Sex: Male
  Weight: 83.9 kg

DRUGS (9)
  1. PROTONIX [Suspect]
     Indication: DYSPHAGIA
     Dosage: 40 MG, UNK
     Route: 065
     Dates: start: 2012, end: 2012
  2. PROTONIX [Suspect]
     Dosage: UNK
     Dates: end: 2012
  3. PROTONIX [Suspect]
     Dosage: 40 MG, 1X/DAY
  4. VIAGRA [Suspect]
     Indication: HYPERTENSION
     Dosage: 100 MG, UNK
     Dates: end: 2012
  5. VIAGRA [Suspect]
     Dosage: UNK
     Dates: end: 2012
  6. VIAGRA [Suspect]
     Dosage: UNK
  7. VIAGRA [Suspect]
     Dosage: 100 MG, AS NEEDED
  8. ASPIRIN [Concomitant]
     Dosage: UNK
  9. BENICAR [Concomitant]
     Indication: HYPERTENSION
     Dosage: UNK

REACTIONS (7)
  - Myocardial infarction [Not Recovered/Not Resolved]
  - Neck injury [Unknown]
  - Depression [Not Recovered/Not Resolved]
  - Dysphagia [Not Recovered/Not Resolved]
  - Thrombosis [Unknown]
  - Erection increased [Unknown]
  - Off label use [Unknown]
